FAERS Safety Report 17119634 (Version 2)
Quarter: 2020Q2

REPORT INFORMATION
  Report Type: Spontaneous
  Country: CA (occurrence: CA)
  Receive Date: 20191206
  Receipt Date: 20200506
  Transmission Date: 20200713
  Serious: Yes (Other)
  Sender: FDA-Public Use
  Company Number: CA-DRREDDYS-USA/CAN/19/0116799

PATIENT
  Age: 78 Year
  Sex: Female
  Weight: 59 kg

DRUGS (6)
  1. MINERALS/VITAMINS NOS [Concomitant]
     Active Substance: MINERALS\VITAMINS
     Indication: VITAMIN SUPPLEMENTATION
     Route: 065
  2. MACROGOL 3350 [Concomitant]
     Active Substance: POLYETHYLENE GLYCOL 3350
     Indication: PRODUCT USED FOR UNKNOWN INDICATION
     Route: 065
  3. SYNTHROID [Concomitant]
     Active Substance: LEVOTHYROXINE SODIUM
     Indication: PRODUCT USED FOR UNKNOWN INDICATION
     Route: 065
  4. POLYETHYLENE GLYCOL [Concomitant]
     Active Substance: POLYETHYLENE GLYCOLS
     Indication: PRODUCT USED FOR UNKNOWN INDICATION
     Route: 065
  5. ZOLEDRONIC ACID. [Suspect]
     Active Substance: ZOLEDRONIC ACID
     Indication: BONE DENSITY ABNORMAL
     Route: 042
  6. DICLOFENAC [Concomitant]
     Active Substance: DICLOFENAC
     Indication: PRODUCT USED FOR UNKNOWN INDICATION
     Route: 065

REACTIONS (16)
  - Arthralgia [Recovering/Resolving]
  - Groin pain [Recovering/Resolving]
  - Abdominal pain [Recovering/Resolving]
  - Insomnia [Recovering/Resolving]
  - Nasal congestion [Recovering/Resolving]
  - Headache [Recovering/Resolving]
  - Arthritis [Recovering/Resolving]
  - Pain in extremity [Recovering/Resolving]
  - Dyspepsia [Recovering/Resolving]
  - Bone pain [Recovering/Resolving]
  - Myalgia [Recovering/Resolving]
  - Tenderness [Recovering/Resolving]
  - Asthenia [Recovering/Resolving]
  - Condition aggravated [Recovering/Resolving]
  - Lethargy [Recovering/Resolving]
  - Fatigue [Recovering/Resolving]
